FAERS Safety Report 6524808-1 (Version None)
Quarter: 2009Q4

REPORT INFORMATION
  Report Type: 
  Country: None (occurrence: None)
  Receive Date: 20091224
  Receipt Date: 20091215
  Transmission Date: 20100525
  Serious: Yes (Death, Hospitalization)
  Sender: FDA-Public Use
  Company Number: 2009003864

PATIENT
  Age: 51 Year
  Sex: Male

DRUGS (4)
  1. ERLOTINIB HYDROCHLORIDE [Suspect]
     Indication: PANCREATIC CARCINOMA
     Dosage: (150 MG), ORAL
     Route: 048
     Dates: start: 20080811, end: 20080924
  2. CAPECITABINE [Suspect]
     Indication: PANCREATIC CARCINOMA
     Dosage: (500 MG), ORAL
     Route: 048
     Dates: start: 20080811, end: 20080924
  3. ASPIRIN [Concomitant]
  4. SIMVASTATIN [Concomitant]

REACTIONS (5)
  - APHASIA [None]
  - CEREBRAL ISCHAEMIA [None]
  - DISEASE PROGRESSION [None]
  - INFECTION [None]
  - PLATELET COUNT DECREASED [None]
